FAERS Safety Report 6909532-5 (Version None)
Quarter: 2010Q3

REPORT INFORMATION
  Report Type: 
  Country: None (occurrence: None)
  Receive Date: 20100803
  Receipt Date: 20100723
  Transmission Date: 20110219
  Serious: Yes (Hospitalization)
  Sender: FDA-Public Use
  Company Number: 016182

PATIENT
  Age: 80 Year
  Sex: Male

DRUGS (2)
  1. NEUPRO [Suspect]
  2. SINEMET [Concomitant]

REACTIONS (1)
  - HYPOTENSION [None]
